FAERS Safety Report 4619044-X (Version None)
Quarter: 2005Q1

REPORT INFORMATION
  Report Type: 
  Country: None (occurrence: None)
  Receive Date: 20050325
  Receipt Date: 20050316
  Transmission Date: 20050727
  Serious: Yes (Hospitalization)
  Sender: FDA-Public Use
  Company Number: JP-BRISTOL-MYERS SQUIBB COMPANY-12902375

PATIENT
  Age: 32 Year
  Sex: Male

DRUGS (4)
  1. DOXORUBICIN [Suspect]
     Indication: LYMPHOMA
     Route: 041
     Dates: start: 20041228, end: 20050210
  2. ENDOXAN [Suspect]
     Indication: LYMPHOMA
     Route: 041
     Dates: start: 20041228, end: 20050210
  3. VINCRISTINE [Suspect]
     Indication: LYMPHOMA
     Route: 042
     Dates: start: 20041228, end: 20050210
  4. RITUXIMAB [Suspect]
     Indication: LYMPHOMA
     Route: 041
     Dates: start: 20050118, end: 20050210

REACTIONS (1)
  - INTERSTITIAL LUNG DISEASE [None]
